FAERS Safety Report 8116304-5 (Version None)
Quarter: 2011Q4

REPORT INFORMATION
  Report Type: 
  Country: None (occurrence: None)
  Receive Date: 20111227
  Receipt Date: 20110906
  Transmission Date: 20120403
  Serious: No
  Sender: FDA-Public Use
  Company Number: PHEH2011US03426

PATIENT

DRUGS (1)
  1. GILENYA [Suspect]

REACTIONS (1)
  - CHEST PAIN [None]
